FAERS Safety Report 8090805-0 (Version None)
Quarter: 2012Q1

REPORT INFORMATION
  Report Type: 
  Country: None (occurrence: None)
  Receive Date: 20120125
  Receipt Date: 20120109
  Transmission Date: 20120608
  Serious: Yes (Hospitalization)
  Sender: FDA-Public Use
  Company Number: 1000027368

PATIENT
  Age: 19 Year
  Sex: Female

DRUGS (5)
  1. ESCITALOPRAM OXALATE [Suspect]
     Dosage: (0.5 DOSAGE FORMS), ORAL
     Route: 048
  2. MACROBID [Suspect]
     Dosage: 200 MG (100 MG, 2 IN 1 D), ORAL
     Route: 048
  3. TRAMADOL HYDROCHLORIDE (TRAMADOL HYDROCHLORIDE) (UNKNOWN) (TRAMADOL HY [Concomitant]
  4. MARVELON (MARVELON) (TABLETS) (MARVELON) [Concomitant]
  5. ESCITALOPRAM OXALATE [Suspect]
     Dosage: (1 DOSAGE FORMS), ORAL
     Route: 048

REACTIONS (7)
  - VISUAL IMPAIRMENT [None]
  - BLOOD POTASSIUM INCREASED [None]
  - EYE SWELLING [None]
  - GENERALISED ERYTHEMA [None]
  - URTICARIA [None]
  - WHITE BLOOD CELL COUNT INCREASED [None]
  - PRURITUS GENERALISED [None]
